FAERS Safety Report 9214525 (Version 2)
Quarter: 2013Q2

REPORT INFORMATION
  Report Type: Spontaneous
  Country: US (occurrence: US)
  Receive Date: 20130405
  Receipt Date: 20130523
  Transmission Date: 20140414
  Serious: Yes (Other)
  Sender: FDA-Public Use
  Company Number: US-AMGEN-USASP2013022753

PATIENT
  Sex: 0

DRUGS (1)
  1. ENBREL [Suspect]
     Dosage: UNK
     Route: 064
     Dates: start: 20100101, end: 201005

REACTIONS (1)
  - Foetal heart rate deceleration [Unknown]
